FAERS Safety Report 20565322 (Version 1)
Quarter: 2022Q1

REPORT INFORMATION
  Report Type: Spontaneous
  Country: US (occurrence: US)
  Receive Date: 20220308
  Receipt Date: 20220308
  Transmission Date: 20220424
  Serious: No
  Sender: FDA-Public Use
  Company Number: US-ALLERGAN-2141137US

PATIENT
  Sex: Female
  Weight: 53.061 kg

DRUGS (2)
  1. ESTRACE [Suspect]
     Active Substance: ESTRADIOL
     Indication: Product used for unknown indication
     Dosage: UNK
  2. ATIVAN [Concomitant]
     Active Substance: LORAZEPAM
     Indication: Anxiety
     Dosage: LOW DOSE

REACTIONS (5)
  - Syncope [Recovered/Resolved]
  - Breast enlargement [Unknown]
  - Abdominal distension [Unknown]
  - Abdominal pain upper [Unknown]
  - Nausea [Unknown]
